FAERS Safety Report 25423321 (Version 2)
Quarter: 2025Q3

REPORT INFORMATION
  Report Type: Spontaneous
  Country: GB (occurrence: GB)
  Receive Date: 20250611
  Receipt Date: 20250716
  Transmission Date: 20251021
  Serious: Yes (Other)
  Sender: PFIZER
  Company Number: GB-PFIZER INC-PV202500069653

PATIENT
  Age: 36 Year
  Sex: Female
  Weight: 73.028 kg

DRUGS (1)
  1. XELJANZ [Suspect]
     Active Substance: TOFACITINIB CITRATE
     Indication: Colitis ulcerative
     Dosage: 5 MG, 2X/DAY (56 TABLET 4 X 14 TABLETS)
     Route: 048
     Dates: start: 202211

REACTIONS (1)
  - Gastric bypass [Unknown]

NARRATIVE: CASE EVENT DATE: 20240606
